FAERS Safety Report 24782925 (Version 3)
Quarter: 2025Q3

REPORT INFORMATION
  Report Type: Spontaneous
  Country: JP (occurrence: JP)
  Receive Date: 20241227
  Receipt Date: 20250821
  Transmission Date: 20251020
  Serious: Yes (Other)
  Sender: ALEXION PHARMACEUTICALS
  Company Number: JP-ASTRAZENECA-240145921_011620_P_1

PATIENT
  Age: 75 Year
  Sex: Female
  Weight: 47.4 kg

DRUGS (6)
  1. LYNPARZA [Suspect]
     Active Substance: OLAPARIB
     Indication: Fallopian tube cancer
     Dosage: 600 MILLIGRAM, QD
  2. BEVACIZUMAB [Concomitant]
     Active Substance: BEVACIZUMAB
     Indication: Fallopian tube cancer
     Route: 065
  3. ANASTROZOLE [Concomitant]
     Active Substance: ANASTROZOLE
     Indication: Fallopian tube cancer
  4. SENNOSIDES [Concomitant]
     Active Substance: SENNOSIDES
     Indication: Fallopian tube cancer
  5. HERBALS [Concomitant]
     Active Substance: HERBALS
     Indication: Fallopian tube cancer
  6. TU-100 [Concomitant]
     Active Substance: ASIAN GINSENG\GINGER\ZANTHOXYLUM PIPERITUM FRUIT PULP
     Indication: Fallopian tube cancer

REACTIONS (1)
  - Interstitial lung disease [Unknown]
